FAERS Safety Report 17047109 (Version 1)
Quarter: 2019Q4

REPORT INFORMATION
  Report Type: Spontaneous
  Country: US (occurrence: US)
  Receive Date: 20191119
  Receipt Date: 20191119
  Transmission Date: 20200122
  Serious: Yes (Hospitalization, Other)
  Sender: FDA-Public Use
  Company Number: US-ZYDUS-043104

PATIENT
  Age: 73 Year
  Sex: Female

DRUGS (1)
  1. BACLOFEN. [Suspect]
     Active Substance: BACLOFEN
     Indication: MUSCULOSKELETAL PAIN
     Dosage: 10 MG THREE TIMES DAILY

REACTIONS (10)
  - Unresponsive to stimuli [Recovered/Resolved]
  - Paralysis [Recovered/Resolved]
  - Coma [Recovered/Resolved]
  - Amnesia [Recovered/Resolved]
  - Somnolence [Recovered/Resolved]
  - Toxicity to various agents [Unknown]
  - Mydriasis [Recovered/Resolved]
  - Hypertension [Recovered/Resolved]
  - Areflexia [Recovered/Resolved]
  - Mental status changes [Recovered/Resolved]
